FAERS Safety Report 10308351 (Version 4)
Quarter: 2014Q3

REPORT INFORMATION
  Report Type: Spontaneous
  Country: FR (occurrence: FR)
  Receive Date: 20140716
  Receipt Date: 20140811
  Transmission Date: 20150326
  Serious: Yes (Death, Hospitalization)
  Sender: FDA-Public Use
  Company Number: FR-PFIZER INC-2014193722

PATIENT
  Age: 77 Year
  Sex: Female

DRUGS (14)
  1. ZANIDIP [Suspect]
     Active Substance: LERCANIDIPINE HYDROCHLORIDE
     Dosage: 20 MG, 1X/DAY
     Route: 048
  2. LASILIX [Interacting]
     Active Substance: FUROSEMIDE
     Dosage: 60 MG, 1X/DAY
     Route: 048
  3. SPIRONOLACTONE. [Interacting]
     Active Substance: SPIRONOLACTONE
     Dosage: 1 DF, DAILY
     Route: 048
  4. EUPANTOL [Suspect]
     Active Substance: PANTOPRAZOLE SODIUM
     Dosage: UNK (20 MG STRENGTH), 1X/DAY
     Route: 048
  5. DIAMICRON [Suspect]
     Active Substance: GLICLAZIDE
     Dosage: 30 MG, 1X/DAY
     Route: 048
  6. NISISCO [Suspect]
     Active Substance: HYDROCHLOROTHIAZIDE\VALSARTAN
     Dosage: 1 DF, 165/25 MG, DAILY
     Route: 048
  7. TAHOR [Suspect]
     Active Substance: ATORVASTATIN CALCIUM
     Dosage: 20 MG ( 1/2 OF 40 MG TABLET) 1X/DAY
     Route: 048
  8. AMIODARONE HCL [Interacting]
     Active Substance: AMIODARONE HYDROCHLORIDE
     Indication: ATRIAL FIBRILLATION
     Dosage: 200 G, UNK (FOR 4 DAYS)
     Route: 048
  9. STAGID [Suspect]
     Active Substance: METFORMIN PAMOATE
     Dosage: 2100 MG, 1X/DAY
     Route: 048
  10. FLECAINE [Suspect]
     Active Substance: FLECAINIDE
     Dosage: 200 MG, 1X/DAY
     Route: 048
  11. TRIVASTAL [Suspect]
     Active Substance: PIRIBEDIL
     Dosage: (50 MG STRENGTH), UNK
     Route: 048
  12. LEVOTHYROX [Suspect]
     Active Substance: LEVOTHYROXINE
     Dosage: (50 UG STRENGTH)
     Route: 048
  13. EUPRESSYL [Suspect]
     Active Substance: URAPIDIL
     Dosage: 60 MG, 1X/DAY
     Route: 048
  14. PREVISCAN [Interacting]
     Active Substance: FLUINDIONE
     Indication: ATRIAL FIBRILLATION
     Dosage: (STRENGTH 20 MG), 0.5 DF OR 0.75 DF, DAILY
     Route: 048

REACTIONS (3)
  - Drug interaction [Fatal]
  - Hydrocephalus [Fatal]
  - Cerebral haemorrhage [Fatal]

NARRATIVE: CASE EVENT DATE: 20140610
